FAERS Safety Report 6952082-0 (Version None)
Quarter: 2010Q3

REPORT INFORMATION
  Report Type: 
  Country: None (occurrence: None)
  Receive Date: 20100829
  Receipt Date: 20100421
  Transmission Date: 20110219
  Serious: No
  Sender: FDA-Public Use
  Company Number: US-ABBOTT-10P-163-0640884-00

PATIENT
  Sex: Male
  Weight: 118.04 kg

DRUGS (12)
  1. NIASPAN [Suspect]
     Indication: BLOOD TRIGLYCERIDES INCREASED
     Dates: start: 20070101
  2. NIASPAN [Suspect]
     Indication: BLOOD CHOLESTEROL INCREASED
  3. NIASPAN [Suspect]
  4. NIASPAN [Suspect]
  5. NIASPAN [Suspect]
  6. NIASPAN [Suspect]
     Route: 048
  7. PERCOCET [Suspect]
     Indication: PROCEDURAL PAIN
     Route: 048
     Dates: start: 20100201, end: 20100201
  8. PRAVASTATIN [Concomitant]
     Indication: BLOOD CHOLESTEROL INCREASED
  9. FENOFIBRATE [Concomitant]
     Indication: BLOOD CHOLESTEROL INCREASED
  10. LISINOPRIL [Concomitant]
     Indication: OEDEMA PERIPHERAL
  11. HYDROCODONE BITARTRATE [Concomitant]
     Indication: PAIN IN EXTREMITY
     Dosage: 1-2 PILLS DAILY
  12. LOVAZA [Concomitant]
     Indication: SUPPLEMENTATION THERAPY

REACTIONS (4)
  - BLOOD CHOLESTEROL INCREASED [None]
  - FLUSHING [None]
  - PROCEDURAL PAIN [None]
  - VERTIGO [None]
